FAERS Safety Report 9482055 (Version 1)
Quarter: 2013Q3

REPORT INFORMATION
  Report Type: Spontaneous
  Country: BR (occurrence: BR)
  Receive Date: 20130828
  Receipt Date: 20130828
  Transmission Date: 20140515
  Serious: Yes (Other)
  Sender: FDA-Public Use
  Company Number: BR-JNJFOC-20130812832

PATIENT
  Age: 16 Year
  Sex: Male

DRUGS (2)
  1. REMICADE [Suspect]
     Indication: CROHN^S DISEASE
     Route: 065
  2. AZATHIOPRINE [Suspect]
     Indication: CROHN^S DISEASE
     Route: 065

REACTIONS (2)
  - Leukopenia [Not Recovered/Not Resolved]
  - Neutropenia [Unknown]
